FAERS Safety Report 8362639 (Version 6)
Quarter: 2015Q2

REPORT INFORMATION
  Report Type: Spontaneous
  Country: US (occurrence: US)
  Receive Date: 20120130
  Receipt Date: 20150526
  Transmission Date: 20150821
  Serious: Yes (Hospitalization, Other)
  Sender: FDA-Public Use
  Company Number: US-ASTRAZENECA-2012SE04519

PATIENT
  Age: 66 Year
  Sex: Male

DRUGS (1)
  1. NEXIUM [Suspect]
     Active Substance: ESOMEPRAZOLE MAGNESIUM
     Indication: GASTROOESOPHAGEAL REFLUX DISEASE
     Route: 048
     Dates: start: 2007

REACTIONS (5)
  - Off label use [Not Recovered/Not Resolved]
  - Intentional product misuse [Unknown]
  - Oesophageal carcinoma [Unknown]
  - Barrett^s oesophagus [Unknown]
  - Vomiting [Unknown]
